FAERS Safety Report 6715328-X (Version None)
Quarter: 2010Q2

REPORT INFORMATION
  Report Type: 
  Country: None (occurrence: None)
  Receive Date: 20100507
  Receipt Date: 20100427
  Transmission Date: 20101027
  Serious: Yes (Other)
  Sender: FDA-Public Use
  Company Number: PL-JNJFOC-20100407804

PATIENT
  Sex: Female

DRUGS (2)
  1. REMICADE [Suspect]
     Indication: RHEUMATOID ARTHRITIS
     Route: 042
  2. REMICADE [Suspect]
     Route: 042

REACTIONS (5)
  - BURNING SENSATION [None]
  - CONJUNCTIVAL HYPERAEMIA [None]
  - DYSPNOEA [None]
  - ERYTHEMA [None]
  - PALPITATIONS [None]
